FAERS Safety Report 21754593 (Version 3)
Quarter: 2023Q1

REPORT INFORMATION
  Report Type: Spontaneous
  Country: US (occurrence: US)
  Receive Date: 20221220
  Receipt Date: 20230224
  Transmission Date: 20230417
  Serious: No
  Sender: FDA-Public Use
  Company Number: US-SA-SAC20221216000539

PATIENT
  Age: 44 Year
  Sex: Female

DRUGS (1)
  1. DUPIXENT [Suspect]
     Active Substance: DUPILUMAB
     Dosage: 300 MG FREQUENCY: OTHER
     Route: 058
     Dates: start: 202208

REACTIONS (5)
  - Pain in extremity [Unknown]
  - Pulmonary pain [Unknown]
  - Injection site rash [Unknown]
  - Injection site pain [Unknown]
  - Arthralgia [Unknown]
